FAERS Safety Report 7040594-3 (Version None)
Quarter: 2010Q4

REPORT INFORMATION
  Report Type: 
  Country: None (occurrence: None)
  Receive Date: 20101012
  Receipt Date: 20100723
  Transmission Date: 20110411
  Serious: Yes (Hospitalization)
  Sender: FDA-Public Use
  Company Number: US-ELI_LILLY_AND_COMPANY-US201010001238

PATIENT
  Sex: Female
  Weight: 57 kg

DRUGS (8)
  1. PEMETREXED [Suspect]
     Indication: MESOTHELIOMA
     Dosage: 500 MG, UNKNOWN
     Route: 042
     Dates: start: 20090929
  2. CISPLATIN [Suspect]
     Indication: MESOTHELIOMA
     Dosage: 4 AUC, UNKNOWN
     Route: 042
     Dates: start: 20090929
  3. OTHER PHARMA COMPANY INV DRUG [Suspect]
     Indication: MESOTHELIOMA
     Dosage: UNK, 2 IN 21 DAYS
     Route: 042
     Dates: start: 20090929, end: 20091229
  4. PEGFILGRASTIM [Concomitant]
     Dates: start: 20100113, end: 20100113
  5. ACETAMINOPHEN [Concomitant]
     Dates: start: 20090113
  6. ACETAMINOPHEN [Concomitant]
     Dosage: 650 MG, UNKNOWN
     Dates: start: 20100118
  7. TAMIFLU [Concomitant]
     Dosage: 75 MG, DAILY
     Dates: start: 20100117
  8. VANCOMYCIN [Concomitant]
     Dates: start: 20100117, end: 20100117

REACTIONS (5)
  - DYSPNOEA [None]
  - FATIGUE [None]
  - MUSCULOSKELETAL CHEST PAIN [None]
  - NEUTROPENIA [None]
  - PYREXIA [None]
